FAERS Safety Report 6386724-8 (Version None)
Quarter: 2009Q4

REPORT INFORMATION
  Report Type: 
  Country: None (occurrence: None)
  Receive Date: 20091002
  Receipt Date: 20090924
  Transmission Date: 20100525
  Serious: No
  Sender: FDA-Public Use
  Company Number: US-B.I. PHARMACEUTICALS,INC./RIDGEFIELD-2009-BP-11013BP

PATIENT
  Sex: Female

DRUGS (4)
  1. SPIRIVA [Suspect]
     Indication: CHRONIC OBSTRUCTIVE PULMONARY DISEASE
     Dosage: 18 MCG
     Route: 055
     Dates: start: 20070101
  2. COUMADIN [Concomitant]
     Indication: ANTICOAGULANT THERAPY
  3. PRILOSEC [Concomitant]
     Indication: GASTROOESOPHAGEAL REFLUX DISEASE
  4. ASTELIN [Concomitant]
     Indication: NASAL DISORDER

REACTIONS (5)
  - EAR PAIN [None]
  - FACIAL PAIN [None]
  - HEADACHE [None]
  - HERPES ZOSTER [None]
  - PRURITUS [None]
